FAERS Safety Report 9380024 (Version 2)
Quarter: 2013Q3

REPORT INFORMATION
  Report Type: Spontaneous
  Country: JP (occurrence: JP)
  Receive Date: 20130702
  Receipt Date: 20130705
  Transmission Date: 20140515
  Serious: Yes (Hospitalization, Other)
  Sender: FDA-Public Use
  Company Number: JP-PFIZER INC-2013194524

PATIENT
  Age: 72 Year
  Sex: Male

DRUGS (13)
  1. LYRICA [Suspect]
     Dosage: UNK
     Route: 048
  2. ZOLPIDEM TARTRATE [Suspect]
     Dosage: UNK
     Route: 048
  3. TRYPTANOL [Suspect]
     Dosage: UNK
     Route: 048
  4. DEPAS [Suspect]
     Dosage: UNK
     Route: 048
  5. NELBON [Suspect]
     Dosage: 10 MG/DAY
     Route: 048
  6. RESLIN [Suspect]
     Dosage: 50 MG/DAY
     Route: 048
  7. COLONEL [Suspect]
     Dosage: 3.6 G/DAY
     Route: 048
  8. MECOBALAMIN [Suspect]
     Dosage: UNK
     Route: 048
  9. BLOPRESS [Suspect]
     Dosage: UNK
     Route: 048
  10. BAYASPIRIN [Suspect]
     Dosage: UNK
     Route: 048
  11. PENCLUSIN [Concomitant]
     Dosage: UNK
     Route: 048
  12. FLUVASTATIN [Concomitant]
     Dosage: UNK
     Route: 048
  13. AMLODIPINE [Concomitant]
     Dosage: 5 MG/DAY
     Route: 048

REACTIONS (1)
  - Gastrointestinal haemorrhage [Unknown]
